FAERS Safety Report 13765451 (Version 2)
Quarter: 2017Q3

REPORT INFORMATION
  Report Type: Spontaneous
  Country: MX (occurrence: MX)
  Receive Date: 20170718
  Receipt Date: 20170804
  Transmission Date: 20171127
  Serious: Yes (Death)
  Sender: FDA-Public Use
  Company Number: MX-ALLERGAN-1729753US

PATIENT
  Age: 74 Year
  Sex: Male

DRUGS (1)
  1. BOTOX [Suspect]
     Active Substance: ONABOTULINUMTOXINA
     Indication: MUSCLE RELAXANT THERAPY
     Dosage: 100 UNITS, SINGLE
     Route: 030

REACTIONS (2)
  - Pulmonary embolism [Fatal]
  - Off label use [Unknown]
